FAERS Safety Report 8707455 (Version 2)
Quarter: 2013Q4

REPORT INFORMATION
  Report Type: Spontaneous
  Country: US (occurrence: US)
  Receive Date: 20120804
  Receipt Date: 20131105
  Transmission Date: 20140711
  Serious: Yes (Other)
  Sender: FDA-Public Use
  Company Number: US-009507513-1207USA010742

PATIENT
  Sex: Male

DRUGS (7)
  1. ZOCOR [Suspect]
     Dosage: 40 MG, UNK
     Route: 048
  2. LOSARTAN POTASSIUM [Suspect]
     Dosage: 50 MG, UNK
     Route: 048
  3. GALVUS MET [Suspect]
     Dosage: 850/50MG, QD
     Route: 048
  4. ATENOLOL [Suspect]
     Dosage: 50 MG, UNK
     Route: 048
  5. DIAMICRON MR [Concomitant]
     Dosage: 30 MG, UNK
  6. ASPIRIN [Concomitant]
     Dosage: 100 MG, UNK
  7. METFORMIN [Concomitant]
     Dosage: 750 MG, UNK

REACTIONS (3)
  - Hypertension [Unknown]
  - Diabetes mellitus [Unknown]
  - No adverse event [Unknown]
